FAERS Safety Report 24132540 (Version 3)
Quarter: 2024Q3

REPORT INFORMATION
  Report Type: Report from Study
  Country: JP (occurrence: JP)
  Receive Date: 20240724
  Receipt Date: 20240928
  Transmission Date: 20241016
  Serious: Yes (Hospitalization)
  Sender: ABBVIE
  Company Number: JP-ABBVIE-20K-087-3449346-00

PATIENT
  Age: 62 Year
  Sex: Male
  Weight: 59 kg

DRUGS (9)
  1. CARBIDOPA\LEVODOPA [Suspect]
     Active Substance: CARBIDOPA\LEVODOPA
     Indication: Parkinson^s disease
     Dosage: MD: 4 ML, CD: 2.7 ML/HR ? 16 HRS, ED: 1.0 ML/UNIT ? 5
     Route: 050
     Dates: start: 20190904, end: 20191023
  2. CARBIDOPA\LEVODOPA [Suspect]
     Active Substance: CARBIDOPA\LEVODOPA
     Dosage: MD: 4 ML, CD: 2.7 ML/HR ? 16 HRS, ED: 1.0 ML/UNIT ? 5
     Route: 050
     Dates: start: 20190827, end: 20190903
  3. CARBIDOPA\LEVODOPA [Suspect]
     Active Substance: CARBIDOPA\LEVODOPA
     Dosage: MD: 7 ML, CD: 2.8 ML/HR ? 16 HRS, ED: 1 ML/UNIT ? 1
     Route: 050
     Dates: start: 20191023
  4. RASAGILINE MESYLATE [Concomitant]
     Active Substance: RASAGILINE MESYLATE
     Indication: Parkinson^s disease
     Dosage: 1 MILLIGRAM
     Route: 048
  5. FEBUXOSTAT [Concomitant]
     Active Substance: FEBUXOSTAT
     Indication: Product used for unknown indication
     Dosage: 20 MILLIGRAM
     Route: 048
  6. ROTIGOTINE [Concomitant]
     Active Substance: ROTIGOTINE
     Indication: Parkinson^s disease
     Dosage: 4.5 MILLIGRAM
     Route: 062
  7. CARBIDOPA\LEVODOPA [Concomitant]
     Active Substance: CARBIDOPA\LEVODOPA
     Indication: Parkinson^s disease
     Dosage: 50 MILLIGRAM
     Route: 048
     Dates: start: 20190904
  8. CLONAZEPAM [Concomitant]
     Active Substance: CLONAZEPAM
     Indication: Product used for unknown indication
     Dosage: 0.5 MILLIGRAM
     Route: 048
  9. MAGNESIUM OXIDE [Concomitant]
     Active Substance: MAGNESIUM OXIDE
     Indication: Product used for unknown indication
     Dosage: 1980 MILLIGRAM
     Route: 048
     Dates: start: 20190904

REACTIONS (4)
  - Hyperthermia malignant [Recovered/Resolved]
  - Dyskinesia [Not Recovered/Not Resolved]
  - Device issue [Recovered/Resolved]
  - Stoma site extravasation [Unknown]

NARRATIVE: CASE EVENT DATE: 20191002
